FAERS Safety Report 7972740-9 (Version None)
Quarter: 2011Q4

REPORT INFORMATION
  Report Type: 
  Country: None (occurrence: None)
  Receive Date: 20111213
  Receipt Date: 20111206
  Transmission Date: 20120403
  Serious: No
  Sender: FDA-Public Use
  Company Number: US-PFIZER INC-2011298846

PATIENT
  Sex: Male
  Weight: 118 kg

DRUGS (1)
  1. NORVASC [Suspect]
     Dosage: UNK

REACTIONS (13)
  - BLOOD PRESSURE DECREASED [None]
  - NERVOUSNESS [None]
  - SINUS CONGESTION [None]
  - HYPERTENSION [None]
  - VERTIGO [None]
  - DIZZINESS [None]
  - DRUG DOSE OMISSION [None]
  - GOUT [None]
  - TINNITUS [None]
  - TREMOR [None]
  - BLOOD CHOLESTEROL INCREASED [None]
  - HEADACHE [None]
  - FEELING ABNORMAL [None]
